FAERS Safety Report 9801942 (Version 2)
Quarter: 2014Q1

REPORT INFORMATION
  Report Type: Spontaneous
  Country: US (occurrence: US)
  Receive Date: 20140107
  Receipt Date: 20140107
  Transmission Date: 20141002
  Serious: Yes (Disabling, Other)
  Sender: FDA-Public Use
  Company Number: US-CELGENEUS-163-21880-13081900

PATIENT
  Age: 60 Year
  Sex: Male

DRUGS (18)
  1. REVLIMID [Suspect]
     Indication: PLASMA CELL MYELOMA
     Dosage: 10 MILLIGRAM
     Route: 048
     Dates: start: 20130701, end: 20130731
  2. REVLIMID [Suspect]
     Dosage: 5 MILLIGRAM
     Route: 048
     Dates: start: 20130827, end: 2013
  3. REVLIMID [Suspect]
     Dosage: 2.5 MILLIGRAM
     Route: 048
     Dates: start: 20131127
  4. BARACLUDE [Concomitant]
     Indication: PRODUCT USED FOR UNKNOWN INDICATION
     Dosage: .5 MILLIGRAM
     Route: 065
     Dates: start: 20130327
  5. BACTRIM DS [Concomitant]
     Indication: PRODUCT USED FOR UNKNOWN INDICATION
     Route: 065
  6. ACYCLOVIR [Concomitant]
     Indication: PRODUCT USED FOR UNKNOWN INDICATION
     Dosage: 1200 MILLIGRAM
     Route: 048
     Dates: start: 20130627
  7. CIPROFLOXACIN [Concomitant]
     Indication: PRODUCT USED FOR UNKNOWN INDICATION
     Dosage: 1000 MILLIGRAM
     Route: 048
     Dates: start: 20131213, end: 20131223
  8. DIPHENHYDRAMINE HCL [Concomitant]
     Indication: SLEEP DISORDER
     Route: 048
  9. DIPHENOXYLATE-ATROPINE [Concomitant]
     Indication: DIARRHOEA
     Dosage: 2.5-0.025MG
     Route: 048
     Dates: start: 20131216
  10. FERROUS SULFATE [Concomitant]
     Indication: PRODUCT USED FOR UNKNOWN INDICATION
     Dosage: 325 MILLIGRAM
     Route: 048
  11. FOLIC ACID [Concomitant]
     Indication: PRODUCT USED FOR UNKNOWN INDICATION
     Dosage: 400 MICROGRAM
     Route: 048
  12. HYDROCODONE-ACETAMINOPHEN [Concomitant]
     Indication: PAIN
     Dosage: 10-325MG
     Route: 048
     Dates: start: 20130305
  13. LORAZEPAM [Concomitant]
     Indication: PRODUCT USED FOR UNKNOWN INDICATION
     Route: 048
     Dates: start: 20131213
  14. METOPROLOL SUCCINATE [Concomitant]
     Indication: PRODUCT USED FOR UNKNOWN INDICATION
     Dosage: 50 MILLIGRAM
     Route: 048
     Dates: start: 20131203
  15. MULTIPLE VITAMINS-MINERALS [Concomitant]
     Indication: PRODUCT USED FOR UNKNOWN INDICATION
     Route: 048
     Dates: end: 20131218
  16. TESTOSTERONE [Concomitant]
     Indication: PRODUCT USED FOR UNKNOWN INDICATION
     Dosage: 200 MILLIGRAM
     Route: 023
     Dates: start: 20131205
  17. THYROID [Concomitant]
     Indication: PRODUCT USED FOR UNKNOWN INDICATION
     Dosage: 60 MILLIGRAM
     Route: 048
     Dates: start: 20130919, end: 20131218
  18. THYROID [Concomitant]
     Dosage: 90 MILLIGRAM
     Route: 048
     Dates: start: 20131218

REACTIONS (5)
  - Cognitive disorder [Recovering/Resolving]
  - Skin odour abnormal [Recovering/Resolving]
  - Road traffic accident [Recovering/Resolving]
  - Road traffic accident [Recovering/Resolving]
  - Road traffic accident [Recovering/Resolving]
